FAERS Safety Report 4498976-X (Version None)
Quarter: 2004Q4

REPORT INFORMATION
  Report Type: 
  Country: None (occurrence: None)
  Receive Date: 20041110
  Receipt Date: 20041110
  Transmission Date: 20050328
  Serious: Yes (Disabling)
  Sender: FDA-Public Use
  Company Number: None

PATIENT
  Age: 38 Year
  Sex: Female
  Weight: 77.1115 kg

DRUGS (1)
  1. OXYCONTIN [Suspect]
     Indication: INTERVERTEBRAL DISC DISORDER
     Dosage: 80 MG SIG PO BID
     Route: 048

REACTIONS (3)
  - DEHYDRATION [None]
  - NAUSEA [None]
  - VOMITING [None]
